FAERS Safety Report 21812957 (Version 1)
Quarter: 2023Q1

REPORT INFORMATION
  Report Type: Spontaneous
  Country: US (occurrence: None)
  Receive Date: 20230102
  Receipt Date: 20230102
  Transmission Date: 20230418
  Serious: Yes (Other)
  Sender: FDA-Public Use
  Company Number: None

PATIENT
  Age: 71 Year
  Sex: Male
  Weight: 103 kg

DRUGS (1)
  1. TAXOL [Suspect]
     Active Substance: PACLITAXEL

REACTIONS (5)
  - Dyspnoea [None]
  - Infusion related reaction [None]
  - Loss of consciousness [None]
  - Pulse absent [None]
  - Cardio-respiratory arrest [None]

NARRATIVE: CASE EVENT DATE: 20221122
